FAERS Safety Report 7993931-7 (Version None)
Quarter: 2011Q4

REPORT INFORMATION
  Report Type: 
  Country: None (occurrence: None)
  Receive Date: 20111215
  Receipt Date: 20111205
  Transmission Date: 20120403
  Serious: Yes (Hospitalization)
  Sender: FDA-Public Use
  Company Number: AUR-APL-2011-06113

PATIENT
  Age: 75 Year
  Sex: Male

DRUGS (7)
  1. FOSINOPRIL SODIUM [Concomitant]
  2. GLICLAZIDE (GLICLAZIDE) [Concomitant]
  3. INDAPAMIDE [Concomitant]
  4. OMEPRAZOLE [Suspect]
     Indication: DUODENAL ULCER
  5. GABAPENTIN [Suspect]
     Indication: HERPES ZOSTER
  6. FLUCONAZOLE [Suspect]
     Indication: OESOPHAGEAL CANDIDIASIS
  7. VALACYCLOVIR [Suspect]
     Indication: HERPES VIRUS INFECTION

REACTIONS (20)
  - DEHYDRATION [None]
  - GAMMA-GLUTAMYLTRANSFERASE INCREASED [None]
  - OEDEMA PERIPHERAL [None]
  - PYREXIA [None]
  - PROTEIN TOTAL DECREASED [None]
  - NEUTROPHILIA [None]
  - ASPARTATE AMINOTRANSFERASE INCREASED [None]
  - BLOOD ALBUMIN DECREASED [None]
  - CHOLESTASIS [None]
  - MALNUTRITION [None]
  - VOMITING [None]
  - BLOOD ALKALINE PHOSPHATASE INCREASED [None]
  - OESOPHAGEAL CANDIDIASIS [None]
  - FACE OEDEMA [None]
  - CHOLELITHIASIS [None]
  - PSEUDOMEMBRANOUS COLITIS [None]
  - LEUKOCYTOSIS [None]
  - BLOOD BILIRUBIN INCREASED [None]
  - ALANINE AMINOTRANSFERASE INCREASED [None]
  - TOXICITY TO VARIOUS AGENTS [None]
